FAERS Safety Report 25849110 (Version 1)
Quarter: 2025Q3

REPORT INFORMATION
  Report Type: Spontaneous
  Country: CN (occurrence: CN)
  Receive Date: 20250925
  Receipt Date: 20250925
  Transmission Date: 20251021
  Serious: Yes (Other)
  Sender: PURDUE
  Company Number: CN-NAPPMUNDI-GBR-2025-0129063

PATIENT
  Age: 75 Year
  Sex: Male

DRUGS (1)
  1. OXYCODONE HYDROCHLORIDE [Suspect]
     Active Substance: OXYCODONE HYDROCHLORIDE
     Indication: Analgesic therapy
     Dosage: 20 MILLIGRAM, BID
     Route: 048
     Dates: start: 20250902, end: 20250902

REACTIONS (5)
  - Gastrooesophageal reflux disease [Unknown]
  - Decreased appetite [Unknown]
  - Vomiting [Unknown]
  - Faeces hard [Recovering/Resolving]
  - Dyschezia [Recovering/Resolving]

NARRATIVE: CASE EVENT DATE: 20250902
